FAERS Safety Report 13396943 (Version 4)
Quarter: 2017Q2

REPORT INFORMATION
  Report Type: Report from Study
  Country: US (occurrence: US)
  Receive Date: 20170403
  Receipt Date: 20170515
  Transmission Date: 20170830
  Serious: Yes (Other)
  Sender: FDA-Public Use
  Company Number: US-GILEAD-2017-0265348

PATIENT
  Age: 82 Year
  Sex: Male

DRUGS (23)
  1. VALSARTAN + HIDROCLOROTIAZIDA [Concomitant]
     Active Substance: HYDROCHLOROTHIAZIDE\VALSARTAN
  2. OCULAR LUBRICANT                   /00445101/ [Concomitant]
  3. DILTIAZEM. [Concomitant]
     Active Substance: DILTIAZEM
  4. DIAZEPAM. [Concomitant]
     Active Substance: DIAZEPAM
  5. ESCITALOPRAM [Concomitant]
     Active Substance: ESCITALOPRAM OXALATE
  6. METOPROLOL                         /00376902/ [Concomitant]
     Active Substance: METOPROLOL
  7. POTASSIUM CHLORIDE. [Concomitant]
     Active Substance: POTASSIUM CHLORIDE
  8. FLUTICASONE. [Concomitant]
     Active Substance: FLUTICASONE
     Route: 045
  9. CELECOXIB 1A PHARMA [Concomitant]
  10. OMEPRAZOLE                         /00661202/ [Concomitant]
  11. PRAVASTATIN                        /00880402/ [Concomitant]
     Active Substance: PRAVASTATIN SODIUM
  12. WARFARIN                           /00014802/ [Concomitant]
     Active Substance: WARFARIN
  13. DIGOXIN. [Concomitant]
     Active Substance: DIGOXIN
  14. METOPROLOL                         /00376902/ [Concomitant]
     Active Substance: METOPROLOL
  15. CALCIUM/VITAMIN D                  /01204201/ [Concomitant]
     Active Substance: CALCIUM CARBONATE\ERGOCALCIFEROL
  16. MULTIVITAMIN                       /00097801/ [Concomitant]
     Active Substance: VITAMINS
  17. AMBRISENTAN [Suspect]
     Active Substance: AMBRISENTAN
     Indication: PULMONARY ARTERIAL HYPERTENSION
     Dosage: 5 MG, UNK
     Route: 048
     Dates: end: 20170406
  18. ASPIRIN                            /00002701/ [Concomitant]
     Active Substance: ASPIRIN
  19. MONTELUKAST                        /01362602/ [Concomitant]
  20. TIOTROPIUM BROMIDE [Concomitant]
     Active Substance: TIOTROPIUM BROMIDE
  21. ADCIRCA [Concomitant]
     Active Substance: TADALAFIL
  22. CHOLECALCIFEROL [Concomitant]
     Active Substance: CHOLECALCIFEROL
  23. TRAZODONE [Concomitant]
     Active Substance: TRAZODONE HYDROCHLORIDE

REACTIONS (4)
  - Oedema [Recovered/Resolved]
  - Dyspnoea [Recovered/Resolved]
  - Cataract [Recovered/Resolved]
  - Oedema [Recovered/Resolved]

NARRATIVE: CASE EVENT DATE: 20160328
